FAERS Safety Report 9218814 (Version 1)
Quarter: 2013Q2

REPORT INFORMATION
  Report Type: Spontaneous
  Country: US (occurrence: None)
  Receive Date: 20130405
  Receipt Date: 20130405
  Transmission Date: 20140414
  Serious: No
  Sender: FDA-Public Use
  Company Number: None

PATIENT
  Age: 45 Year
  Sex: Female
  Weight: 81.65 kg

DRUGS (1)
  1. MUCINEX D [Suspect]
     Dosage: 2 TABLETS
     Route: 048
     Dates: start: 20130309, end: 20130316

REACTIONS (5)
  - Erythema [None]
  - Rash [None]
  - Milia [None]
  - Swelling face [None]
  - Dyspnoea [None]
